FAERS Safety Report 5759443-6 (Version None)
Quarter: 2008Q2

REPORT INFORMATION
  Report Type: 
  Country: None (occurrence: None)
  Receive Date: 20080605
  Receipt Date: 20071203
  Transmission Date: 20081010
  Serious: No
  Sender: FDA-Public Use
  Company Number: US-BAYER-200716076NA

PATIENT
  Age: 25 Year
  Sex: Female

DRUGS (2)
  1. MIRENA [Suspect]
     Indication: CONTRACEPTION
     Route: 015
  2. MIRENA [Suspect]
     Route: 015
     Dates: start: 20070901

REACTIONS (5)
  - AMENORRHOEA [None]
  - HEADACHE [None]
  - MENSTRUAL DISORDER [None]
  - NAUSEA [None]
  - VAGINAL HAEMORRHAGE [None]
